FAERS Safety Report 8471504 (Version 2)
Quarter: 2012Q4

REPORT INFORMATION
  Report Type: 
  Country: IT (occurrence: IT)
  Receive Date: 20120322
  Receipt Date: 20121015
  Transmission Date: 20130627
  Serious: Yes (Other)
  Sender: FDA-Public Use
  Company Number: IT-BAYER-2012-027487

PATIENT
  Age: 61 Year
  Sex: Female

DRUGS (5)
  1. NEXAVAR [Suspect]
     Indication: RENAL CELL CARCINOMA
     Dosage: 800 mg, daily
     Route: 048
     Dates: start: 20080625, end: 20081107
  2. NEXAVAR [Suspect]
     Indication: RENAL CELL CARCINOMA
     Route: 048
  3. CRESTOR [Concomitant]
     Dosage: Daily dose 10 mg
     Route: 048
     Dates: start: 20050101
  4. GARDENALE [Concomitant]
     Dosage: Daily dose 100 mg
     Route: 048
     Dates: start: 20060101
  5. DEURSIL [Concomitant]
     Dosage: Daily dose 300 mg
     Route: 048
     Dates: start: 20090123

REACTIONS (3)
  - Hepatotoxicity [Recovering/Resolving]
  - Pancreatic disorder [Recovering/Resolving]
  - Diarrhoea [Recovering/Resolving]
